FAERS Safety Report 9965756 (Version 1)
Quarter: 2014Q1

REPORT INFORMATION
  Report Type: Report from Study
  Country: US (occurrence: US)
  Receive Date: 20140305
  Receipt Date: 20140305
  Transmission Date: 20141002
  Serious: No
  Sender: FDA-Public Use
  Company Number: US-ABBVIE-13P-163-1123352-00

PATIENT
  Age: 45 Year
  Sex: Female

DRUGS (5)
  1. HUMIRA [Suspect]
     Indication: RHEUMATOID ARTHRITIS
     Dates: start: 20130502
  2. HUMIRA [Suspect]
  3. LORTAB [Concomitant]
     Indication: PAIN
  4. TRAZODONE [Concomitant]
     Indication: PRODUCT USED FOR UNKNOWN INDICATION
     Dosage: AT BEDTIME
  5. XANAX [Concomitant]
     Indication: ANXIETY

REACTIONS (3)
  - Hypoaesthesia [Recovering/Resolving]
  - Joint range of motion decreased [Recovering/Resolving]
  - Burning sensation [Recovering/Resolving]
